FAERS Safety Report 23219679 (Version 1)
Quarter: 2023Q4

REPORT INFORMATION
  Report Type: Report from Study
  Country: EG (occurrence: EG)
  Receive Date: 20231122
  Receipt Date: 20231122
  Transmission Date: 20240109
  Serious: Yes (Other)
  Sender: FDA-Public Use
  Company Number: EG-002147023-NVSC2022EG243786

PATIENT
  Age: 13 Year
  Sex: Male
  Weight: 92 kg

DRUGS (4)
  1. COSENTYX [Suspect]
     Active Substance: SECUKINUMAB
     Indication: Psoriatic arthropathy
     Dosage: 1 DOSAGE FORM, WEEKLY FOR 4  WEEKS (ONE MONTH) THEN 1 PREFILLED PEN MONTHLY AS A MAINTENANCE DOSE
     Route: 058
     Dates: start: 202210
  2. COSENTYX [Suspect]
     Active Substance: SECUKINUMAB
     Dosage: 1 DOSAGE FORM, EVERY 10 DAYS
     Route: 058
     Dates: end: 202310
  3. INDERAL [Concomitant]
     Active Substance: PROPRANOLOL HYDROCHLORIDE
     Indication: Heart rate irregular
     Dosage: 3 DOSAGE FORM, QD (BEFORE)
     Route: 065
     Dates: start: 2021
  4. INDERAL [Concomitant]
     Active Substance: PROPRANOLOL HYDROCHLORIDE
     Dosage: 1 DOSAGE FORM (AS NEEDED MAY BE EVERY 2 OR 3 WEEKS STARTING 6 OR 7 MONTHS))
     Route: 065

REACTIONS (20)
  - Pyrexia [Recovered/Resolved]
  - Nasopharyngitis [Recovered/Resolved]
  - Immunosuppression [Unknown]
  - Psoriatic arthropathy [Recovered/Resolved]
  - Pyrexia [Unknown]
  - White blood cell count decreased [Recovered/Resolved]
  - Abdominal pain upper [Unknown]
  - Fatigue [Recovered/Resolved]
  - Dizziness [Recovered/Resolved]
  - Feeling abnormal [Recovered/Resolved]
  - Gait disturbance [Recovered/Resolved]
  - Dysstasia [Recovered/Resolved]
  - Hyperhidrosis [Recovered/Resolved]
  - Laziness [Unknown]
  - Disturbance in attention [Unknown]
  - Somnolence [Unknown]
  - Red blood cell sedimentation rate increased [Unknown]
  - Weight increased [Not Recovered/Not Resolved]
  - Off label use [Not Recovered/Not Resolved]
  - Drug ineffective [Recovered/Resolved]

NARRATIVE: CASE EVENT DATE: 20221001
